FAERS Safety Report 5303429-2 (Version None)
Quarter: 2007Q2

REPORT INFORMATION
  Report Type: 
  Country: None (occurrence: None)
  Receive Date: 20070420
  Receipt Date: 20070416
  Transmission Date: 20071010
  Serious: Yes (Hospitalization, Other)
  Sender: FDA-Public Use
  Company Number: BR-BRISTOL-MYERS SQUIBB COMPANY-13754494

PATIENT
  Age: 48 Year
  Sex: Female
  Weight: 50 kg

DRUGS (5)
  1. BUSPAR [Suspect]
     Indication: DEPRESSION
     Route: 048
     Dates: start: 20070101
  2. BUSPAR [Suspect]
     Indication: ANXIETY
     Route: 048
     Dates: start: 20070101
  3. NEOZINE [Suspect]
     Indication: PANIC DISORDER
  4. RIVOTRIL [Concomitant]
     Indication: PANIC DISORDER
     Route: 048
  5. SOTALOL HCL [Concomitant]
     Indication: MITRAL VALVE PROLAPSE
     Route: 048

REACTIONS (11)
  - APATHY [None]
  - COMA [None]
  - CONFUSIONAL STATE [None]
  - DIARRHOEA [None]
  - HYPOTENSION [None]
  - HYPOTHERMIA [None]
  - MALAISE [None]
  - NAUSEA [None]
  - SUICIDE ATTEMPT [None]
  - VOMITING [None]
  - WEIGHT DECREASED [None]
